FAERS Safety Report 11230768 (Version 1)
Quarter: 2015Q2

REPORT INFORMATION
  Report Type: Spontaneous
  Country: US (occurrence: None)
  Receive Date: 20150612
  Receipt Date: 20150612
  Transmission Date: 20150821
  Serious: Yes (Hospitalization, Other)
  Sender: FDA-Public Use
  Company Number: 2014AP006398

PATIENT
  Age: 53 Year
  Sex: Male

DRUGS (4)
  1. TOPIRAMATE (TOPIRAMATE) TABLET [Suspect]
     Active Substance: TOPIRAMATE
     Indication: SEIZURE
  2. ZIDOVUDINE. [Concomitant]
     Active Substance: ZIDOVUDINE
  3. LAMIVUDINE. [Concomitant]
     Active Substance: LAMIVUDINE
  4. ATAZANAVIR [Concomitant]
     Active Substance: ATAZANAVIR

REACTIONS (2)
  - Metabolic acidosis [None]
  - Hypokalaemia [None]
